FAERS Safety Report 5825622-2 (Version None)
Quarter: 2008Q3

REPORT INFORMATION
  Report Type: 
  Country: None (occurrence: None)
  Receive Date: 20080729
  Receipt Date: 20080721
  Transmission Date: 20090109
  Serious: Yes (Other)
  Sender: FDA-Public Use
  Company Number: B0526249A

PATIENT
  Age: 74 Year
  Sex: Male

DRUGS (1)
  1. REQUIP [Suspect]
     Indication: PARKINSON'S DISEASE
     Route: 065
     Dates: end: 20080101

REACTIONS (4)
  - ABNORMAL DREAMS [None]
  - EXCESSIVE SEXUAL FANTASIES [None]
  - HALLUCINATION [None]
  - HYPERSEXUALITY [None]
